FAERS Safety Report 10298522 (Version 1)
Quarter: 2014Q3

REPORT INFORMATION
  Report Type: Spontaneous
  Country: GB (occurrence: GB)
  Receive Date: 20140711
  Receipt Date: 20140711
  Transmission Date: 20150326
  Serious: Yes (Other)
  Sender: FDA-Public Use
  Company Number: GB-PFIZER INC-2014189559

PATIENT
  Age: 33 Year
  Sex: Female

DRUGS (1)
  1. NAFARELIN ACETATE [Suspect]
     Active Substance: NAFARELIN ACETATE
     Dosage: 400 UG, 2X/DAY
     Route: 045

REACTIONS (1)
  - Ovarian hyperstimulation syndrome [Recovered/Resolved]
